FAERS Safety Report 4997968-1 (Version None)
Quarter: 2006Q2

REPORT INFORMATION
  Report Type: 
  Country: None (occurrence: None)
  Receive Date: 20060508
  Receipt Date: 20060424
  Transmission Date: 20061013
  Serious: Yes (Hospitalization)
  Sender: FDA-Public Use
  Company Number: FABR-11400

PATIENT
  Age: 36 Year
  Sex: Female
  Weight: 98.3 kg

DRUGS (10)
  1. FABRAZYME [Suspect]
     Indication: FABRY'S DISEASE
     Dosage: 1 MG/KG Q2WKS IV
     Route: 042
     Dates: start: 20060210
  2. FABRAZYME [Suspect]
     Indication: FABRY'S DISEASE
     Dosage: 1 MG/KG Q2WKS IV
     Route: 042
     Dates: start: 20051104, end: 20051101
  3. AMITRIPTYLINE HCL [Concomitant]
  4. TYLENOL W/ CODEINE [Concomitant]
  5. OMEPRAZOLE [Concomitant]
  6. METHOCARBAMOL [Concomitant]
  7. ATENOLOL [Concomitant]
  8. LEXAPRO [Concomitant]
  9. DETROL LA [Concomitant]
  10. NAPROXEN ER [Concomitant]

REACTIONS (9)
  - BACK PAIN [None]
  - CHEST DISCOMFORT [None]
  - DYSPNOEA [None]
  - HYPOPERFUSION [None]
  - INFUSION RELATED REACTION [None]
  - MYOCARDIAL ISCHAEMIA [None]
  - NAUSEA [None]
  - NON-CARDIAC CHEST PAIN [None]
  - PLEURITIC PAIN [None]
